FAERS Safety Report 8833284 (Version 2)
Quarter: 2012Q4

REPORT INFORMATION
  Report Type: 
  Country: DZ (occurrence: DZ)
  Receive Date: 20121010
  Receipt Date: 20121022
  Transmission Date: 20130627
  Serious: Yes (Other)
  Sender: FDA-Public Use
  Company Number: DZ-PFIZER INC-2012250583

PATIENT
  Age: 63 Year
  Sex: Female

DRUGS (4)
  1. LYRICA [Suspect]
     Indication: DIABETIC NEUROPATHY
     Dosage: 150 mg, 2x/day
     Route: 048
  2. LANTUS [Concomitant]
     Dosage: UNK
  3. GLUCOPHAGE [Concomitant]
     Dosage: UNK
  4. NOVONORM [Concomitant]
     Dosage: UNK

REACTIONS (4)
  - Coma [Recovered/Resolved]
  - Loss of consciousness [Recovered/Resolved]
  - Drooling [Recovered/Resolved]
  - Gait disturbance [Recovered/Resolved]
